FAERS Safety Report 11212882 (Version 1)
Quarter: 2015Q2

REPORT INFORMATION
  Report Type: Spontaneous
  Country: US (occurrence: None)
  Receive Date: 20150622
  Receipt Date: 20150622
  Transmission Date: 20150821
  Serious: Yes (Life-Threatening, Hospitalization)
  Sender: FDA-Public Use
  Company Number: None

PATIENT
  Sex: Male
  Weight: 105 kg

DRUGS (2)
  1. XARELTO [Suspect]
     Active Substance: RIVAROXABAN
     Indication: PULMONARY OEDEMA
     Dosage: RECENT TRANSITION TO XARELTO
     Route: 048
  2. XARELTO [Suspect]
     Active Substance: RIVAROXABAN
     Indication: DEEP VEIN THROMBOSIS
     Dosage: RECENT TRANSITION TO XARELTO
     Route: 048

REACTIONS (9)
  - Acute kidney injury [None]
  - Pneumonia [None]
  - Respiratory failure [None]
  - Gastric ulcer [None]
  - Confusional state [None]
  - Hiatus hernia [None]
  - Haematemesis [None]
  - Sepsis [None]
  - Urinary tract infection [None]
